FAERS Safety Report 5777116-0 (Version None)
Quarter: 2008Q2

REPORT INFORMATION
  Report Type: 
  Country: None (occurrence: None)
  Receive Date: 20080616
  Receipt Date: 20080603
  Transmission Date: 20081010
  Serious: Yes (Hospitalization)
  Sender: FDA-Public Use
  Company Number: 100#08#2008-03038

PATIENT
  Age: 61 Year
  Sex: Male

DRUGS (4)
  1. CARBAMAZEPINE [Suspect]
     Indication: NEURALGIA
     Dosage: AFTER WITHDRAWAL A PROVOCATION TEST WAS PERFORMED FROM 50 MG TO 400 MG
  2. LISINOPRIL [Concomitant]
  3. OXYBUTYNIN CHLORIDE [Concomitant]
  4. BACLOFEN [Concomitant]

REACTIONS (8)
  - DRUG RASH WITH EOSINOPHILIA AND SYSTEMIC SYMPTOMS [None]
  - DYSPHAGIA [None]
  - ENDOSCOPY GASTROINTESTINAL ABNORMAL [None]
  - GASTROINTESTINAL MUCOSAL DISORDER [None]
  - NAUSEA [None]
  - OESOPHAGITIS [None]
  - SKIN TEST POSITIVE [None]
  - VOMITING [None]
